FAERS Safety Report 20694922 (Version 1)
Quarter: 2022Q2

REPORT INFORMATION
  Report Type: Spontaneous
  Country: US (occurrence: None)
  Receive Date: 20220408
  Receipt Date: 20220408
  Transmission Date: 20220720
  Serious: Yes (unspecified)
  Sender: FDA-Public Use
  Company Number: None

PATIENT
  Age: 40 Year
  Sex: Female
  Weight: 90 kg

DRUGS (12)
  1. ATOMOXETINE [Suspect]
     Active Substance: ATOMOXETINE
     Indication: Attention deficit hyperactivity disorder
     Dosage: 30 CAPSULES DAILY ORAL?
     Route: 048
     Dates: start: 20210917, end: 20220228
  2. METHYLPHENIDATE [Concomitant]
     Active Substance: METHYLPHENIDATE
  3. ZOLMITRIPTAN [Concomitant]
     Active Substance: ZOLMITRIPTAN
  4. DISINTEGR [Concomitant]
  5. GUANFACINE [Concomitant]
     Active Substance: GUANFACINE
  6. TIZANIDINE HCL [Concomitant]
  7. SmartyPants [Concomitant]
  8. MULTI [Concomitant]
  9. ALLEGRA [Concomitant]
     Active Substance: FEXOFENADINE HYDROCHLORIDE
  10. Vitamin D [Concomitant]
  11. MAGNESIUM [Concomitant]
     Active Substance: MAGNESIUM
  12. IBUPROFEN [Concomitant]
     Active Substance: IBUPROFEN

REACTIONS (7)
  - Insomnia [None]
  - Heart rate increased [None]
  - Hypertension [None]
  - Chest discomfort [None]
  - Cardiac flutter [None]
  - Lethargy [None]
  - Job dissatisfaction [None]

NARRATIVE: CASE EVENT DATE: 20210917
